FAERS Safety Report 9290173 (Version 1)
Quarter: 2013Q2

REPORT INFORMATION
  Report Type: Spontaneous
  Country: US (occurrence: None)
  Receive Date: 20130510
  Receipt Date: 20130510
  Transmission Date: 20140414
  Serious: Yes (Hospitalization)
  Sender: FDA-Public Use
  Company Number: P1-09368

PATIENT
  Sex: Female

DRUGS (1)
  1. CHLORAPREP (2% CHG/70%/PA) WITH TINT (FD+C YELLOW#6) [Suspect]
     Indication: PREOPERATIVE CARE
     Route: 061
     Dates: start: 20130422

REACTIONS (2)
  - Burns first degree [None]
  - Burns second degree [None]
